FAERS Safety Report 12293468 (Version 3)
Quarter: 2016Q2

REPORT INFORMATION
  Report Type: Spontaneous
  Country: US (occurrence: US)
  Receive Date: 20160421
  Receipt Date: 20160426
  Transmission Date: 20160815
  Serious: Yes (Other)
  Sender: FDA-Public Use
  Company Number: US-TEVA-653531USA

PATIENT
  Sex: Female

DRUGS (1)
  1. ACTIQ [Suspect]
     Active Substance: FENTANYL CITRATE
     Indication: PRODUCT USED FOR UNKNOWN INDICATION
     Route: 065

REACTIONS (3)
  - Spinal cord disorder [Unknown]
  - Pain [Unknown]
  - Neck surgery [Unknown]
